FAERS Safety Report 8212330-6 (Version None)
Quarter: 2012Q1

REPORT INFORMATION
  Report Type: 
  Country: None (occurrence: None)
  Receive Date: 20120315
  Receipt Date: 20120305
  Transmission Date: 20120608
  Serious: Yes (Hospitalization, Other)
  Sender: FDA-Public Use
  Company Number: US-GLAXOSMITHKLINE-A0965371A

PATIENT
  Age: 56 Year
  Sex: Male
  Weight: 73.5 kg

DRUGS (2)
  1. OFATUMUMAB [Suspect]
     Indication: LEUKAEMIA
     Dosage: 1000MG WEEKLY
     Route: 042
     Dates: start: 20110811, end: 20110831
  2. INVESTIGATIONAL STUDY DRUG [Suspect]
     Indication: LEUKAEMIA
     Dosage: 150MG TWICE PER DAY
     Route: 048
     Dates: start: 20110810, end: 20111014

REACTIONS (1)
  - TRANSAMINASES INCREASED [None]
